FAERS Safety Report 11891862 (Version 1)
Quarter: 2016Q1

REPORT INFORMATION
  Report Type: Spontaneous
  Country: TR (occurrence: TR)
  Receive Date: 20160106
  Receipt Date: 20160106
  Transmission Date: 20160526
  Serious: Yes (Other)
  Sender: FDA-Public Use
  Company Number: TR-CELGENE-TUR-2015125753

PATIENT
  Sex: Male

DRUGS (2)
  1. AKSEF [Suspect]
     Active Substance: CEFUROXIME
     Indication: INFLUENZA
     Route: 065
  2. REVLIMID [Suspect]
     Active Substance: LENALIDOMIDE
     Indication: PRODUCT USED FOR UNKNOWN INDICATION
     Dosage: 25 MILLIGRAM
     Route: 048

REACTIONS (3)
  - Constipation [Unknown]
  - Sleep disorder [Unknown]
  - Influenza [Unknown]
